FAERS Safety Report 20434863 (Version 3)
Quarter: 2022Q1

REPORT INFORMATION
  Report Type: Report from Study
  Country: EG (occurrence: EG)
  Receive Date: 20220206
  Receipt Date: 20220218
  Transmission Date: 20220423
  Serious: Yes (Other)
  Sender: FDA-Public Use
  Company Number: EG-NOVARTISPH-NVSC2022EG023467

PATIENT
  Age: 17 Year
  Sex: Female

DRUGS (1)
  1. GILENYA [Suspect]
     Active Substance: FINGOLIMOD HYDROCHLORIDE
     Indication: Multiple sclerosis
     Dosage: 0.5 MG, QD
     Route: 048
     Dates: start: 202101

REACTIONS (8)
  - Optic nerve disorder [Not Recovered/Not Resolved]
  - Osteomalacia [Not Recovered/Not Resolved]
  - Rickets [Not Recovered/Not Resolved]
  - Blindness transient [Recovering/Resolving]
  - Dizziness [Recovering/Resolving]
  - Multiple sclerosis relapse [Recovering/Resolving]
  - Cardiac disorder [Not Recovered/Not Resolved]
  - Fall [Not Recovered/Not Resolved]

NARRATIVE: CASE EVENT DATE: 20210101
